FAERS Safety Report 10662593 (Version 1)
Quarter: 2014Q4

REPORT INFORMATION
  Report Type: Spontaneous
  Country: US (occurrence: US)
  Receive Date: 20141218
  Receipt Date: 20141218
  Transmission Date: 20150529
  Serious: No
  Sender: FDA-Public Use
  Company Number: US-BAUSCH-BL-2014-005567

PATIENT
  Age: 73 Year
  Sex: Female
  Weight: 49.94 kg

DRUGS (3)
  1. XENAZINE [Suspect]
     Active Substance: TETRABENAZINE
     Indication: HUNTINGTON^S DISEASE
     Dosage: 1/2 TABLET 3 TIMES DAILY
     Route: 048
     Dates: start: 201408
  2. XENAZINE [Suspect]
     Active Substance: TETRABENAZINE
     Route: 048
     Dates: start: 201409
  3. XENAZINE [Suspect]
     Active Substance: TETRABENAZINE
     Dosage: 1/2 TABLET 3 TIMES DAILY
     Route: 048
     Dates: start: 201409

REACTIONS (2)
  - Mood altered [Recovered/Resolved]
  - Lethargy [Recovered/Resolved]

NARRATIVE: CASE EVENT DATE: 201409
